FAERS Safety Report 23488109 (Version 1)
Quarter: 2024Q1

REPORT INFORMATION
  Report Type: Spontaneous
  Country: IT (occurrence: IT)
  Receive Date: 20240206
  Receipt Date: 20240206
  Transmission Date: 20240410
  Serious: Yes (Death, Other)
  Sender: FDA-Public Use
  Company Number: IT-NOVPHSZ-PHHY2018IT152719

PATIENT
  Age: 56 Year
  Sex: Male

DRUGS (29)
  1. ETOPOSIDE [Suspect]
     Active Substance: ETOPOSIDE
     Indication: Plasma cell myeloma
     Dosage: UNK,2 CYCLES
     Route: 065
     Dates: start: 20100616, end: 20100803
  2. BORTEZOMIB [Suspect]
     Active Substance: BORTEZOMIB
     Indication: Plasma cell myeloma
     Dosage: UNK, THREE CYCLE
     Route: 065
     Dates: start: 20091030, end: 20091211
  3. BORTEZOMIB [Suspect]
     Active Substance: BORTEZOMIB
     Dosage: UNK,2 CYCLES
     Route: 065
     Dates: start: 20100616, end: 20100803
  4. BORTEZOMIB [Suspect]
     Active Substance: BORTEZOMIB
     Dosage: UNK, 4 CYCLE
     Route: 065
     Dates: start: 20100113, end: 20100406
  5. BENDAMUSTINE HYDROCHLORIDE [Suspect]
     Active Substance: BENDAMUSTINE HYDROCHLORIDE
     Indication: Plasma cell myeloma
     Dosage: UNK, 5 CYCLIC
     Route: 042
     Dates: start: 20140115, end: 20140520
  6. CYCLOSPORINE [Suspect]
     Active Substance: CYCLOSPORINE
     Indication: Prophylaxis against graft versus host disease
     Dosage: UNK
     Route: 065
     Dates: end: 201205
  7. DOXORUBICIN [Suspect]
     Active Substance: DOXORUBICIN
     Indication: Plasma cell myeloma
     Dosage: UNK,4 CYCLES
     Route: 065
     Dates: start: 20100115, end: 20100406
  8. DOXORUBICIN [Suspect]
     Active Substance: DOXORUBICIN
     Dosage: UNK,2 CYCLES
     Route: 065
     Dates: start: 20100616, end: 20100803
  9. PREDNISONE [Suspect]
     Active Substance: PREDNISONE
     Indication: Plasma cell myeloma
     Dosage: UNK,SIX CYCLES
     Route: 065
     Dates: start: 20090115, end: 20090604
  10. PREDNISONE [Suspect]
     Active Substance: PREDNISONE
     Dosage: UNK,1 CYCLE
     Route: 065
     Dates: start: 20140625
  11. ALPELISIB [Suspect]
     Active Substance: ALPELISIB
     Indication: Plasma cell myeloma
     Dosage: UNK, 11 CYCLIC
     Route: 065
     Dates: start: 20140807, end: 20150526
  12. LENALIDOMIDE [Suspect]
     Active Substance: LENALIDOMIDE
     Indication: Plasma cell myeloma
     Dosage: UNK,FOUR CYCLES
     Route: 065
     Dates: start: 20080701, end: 20080923
  13. LENALIDOMIDE [Suspect]
     Active Substance: LENALIDOMIDE
     Dosage: UNK,SIX CYCLES
     Route: 065
     Dates: start: 20090115, end: 20090604
  14. MELPHALAN [Suspect]
     Active Substance: MELPHALAN
     Indication: Plasma cell myeloma
     Dosage: UNK UNK, 6 CYCLIC
     Route: 065
     Dates: start: 20090115, end: 20090604
  15. MELPHALAN [Suspect]
     Active Substance: MELPHALAN
     Dosage: UNK,1 CYCLE
     Route: 065
     Dates: start: 20140625
  16. DEXAMETHASONE [Suspect]
     Active Substance: DEXAMETHASONE
     Indication: Plasma cell myeloma
     Dosage: UNK, FOUR CYCLES
     Route: 065
     Dates: start: 20080701, end: 20080923
  17. DEXAMETHASONE [Suspect]
     Active Substance: DEXAMETHASONE
     Dosage: UNK, THREE CYCLE
     Route: 065
     Dates: start: 20091030, end: 20091211
  18. DEXAMETHASONE [Suspect]
     Active Substance: DEXAMETHASONE
     Dosage: UNK,4 CYCLES
     Route: 065
     Dates: start: 20100115, end: 20100406
  19. DEXAMETHASONE [Suspect]
     Active Substance: DEXAMETHASONE
     Dosage: UNK,2 CYCLES
     Route: 065
     Dates: start: 20100616, end: 20100803
  20. DEXAMETHASONE [Suspect]
     Active Substance: DEXAMETHASONE
     Dosage: UNK, 17 CYCLIC
     Route: 065
     Dates: start: 20120523, end: 20131116
  21. DEXAMETHASONE [Suspect]
     Active Substance: DEXAMETHASONE
     Dosage: UNK, 7 CYCLE
     Route: 065
     Dates: start: 20151115, end: 20160225
  22. CARFILZOMIB [Suspect]
     Active Substance: CARFILZOMIB
     Indication: Plasma cell myeloma
     Dosage: UNK,7 CYCLES
     Route: 065
     Dates: start: 20151115, end: 20160225
  23. POMALIDOMIDE [Suspect]
     Active Substance: POMALIDOMIDE
     Indication: Plasma cell myeloma
     Dosage: UNK,7 CYCLES
     Route: 065
     Dates: start: 20151115, end: 20160225
  24. PLATINUM [Suspect]
     Active Substance: PLATINUM
     Indication: Plasma cell myeloma
     Dosage: UNK, 2 CYCLIC
     Route: 065
     Dates: start: 20100616, end: 20100803
  25. CYCLOPHOSPHAMIDE [Suspect]
     Active Substance: CYCLOPHOSPHAMIDE
     Indication: Plasma cell myeloma
     Dosage: UNK,SINGLE CYCLE
     Route: 065
     Dates: start: 20081121
  26. CYCLOPHOSPHAMIDE [Suspect]
     Active Substance: CYCLOPHOSPHAMIDE
     Dosage: UNK,SIX CYCLES
     Route: 065
     Dates: start: 20090115, end: 20090604
  27. CYCLOPHOSPHAMIDE [Suspect]
     Active Substance: CYCLOPHOSPHAMIDE
     Dosage: UNK,2 CYCLES
     Route: 065
     Dates: start: 20100616, end: 20100803
  28. LAMIVUDINE [Concomitant]
     Active Substance: LAMIVUDINE
     Indication: Antiviral prophylaxis
     Dosage: UNK
     Route: 065
  29. LAMIVUDINE [Concomitant]
     Active Substance: LAMIVUDINE
     Indication: Product used for unknown indication
     Dosage: UNK
     Route: 065

REACTIONS (3)
  - Plasma cell myeloma [Unknown]
  - Malignant neoplasm progression [Unknown]
  - Hepatitis B reactivation [Not Recovered/Not Resolved]
